FAERS Safety Report 25536019 (Version 1)
Quarter: 2025Q3

REPORT INFORMATION
  Report Type: Spontaneous
  Country: US (occurrence: None)
  Receive Date: 20250709
  Receipt Date: 20250709
  Transmission Date: 20251020
  Serious: Yes (Death)
  Sender: FDA-CTU
  Company Number: None

PATIENT
  Age: 64 Year
  Sex: Male
  Weight: 100.35 kg

DRUGS (8)
  1. REVLIMID [Suspect]
     Active Substance: LENALIDOMIDE
     Indication: Plasma cell myeloma
     Dosage: FREQUENCY : DAILY;?
     Route: 048
     Dates: start: 20160520, end: 20250703
  2. ACYCLOVIR [Concomitant]
     Active Substance: ACYCLOVIR
  3. aspirin 81 mg tablet,delayed release [Concomitant]
  4. hydrocodone 5 mg-acetaminophen 325 mg table [Concomitant]
  5. omeprazole 40 mg capsule,delayed release [Concomitant]
  6. ondansetron 8 mg disintegrating tablet [Concomitant]
  7. potassium chloride ER 20 mEq tablet,extended release [Concomitant]
  8. warfarin 5 mg tablet [Concomitant]

REACTIONS (1)
  - Death [None]

NARRATIVE: CASE EVENT DATE: 20250703
